FAERS Safety Report 4504174-3 (Version None)
Quarter: 2004Q4

REPORT INFORMATION
  Report Type: 
  Country: None (occurrence: None)
  Receive Date: 20041115
  Receipt Date: 20041028
  Transmission Date: 20050328
  Serious: Yes (Hospitalization, Disabling)
  Sender: FDA-Public Use
  Company Number: 002#4#2004-00267

PATIENT
  Age: 51 Year
  Sex: Female

DRUGS (7)
  1. PPA/CPM-75 /8 MG (OTC) (PHENYLPROPANOLAMINE HCL, CHLORPHENIRAMINE MALE [Suspect]
     Indication: NASOPHARYNGITIS
     Dosage: ORAL
     Route: 048
  2. ALKA-SELTZER-PLUS-COLD [Suspect]
     Indication: NASOPHARYNGITIS
     Dosage: ORAL
     Route: 048
  3. ENTAX-LA [Suspect]
     Indication: NASOPHARYNGITIS
     Dosage: ORAL
     Route: 048
  4. BC-ALLERGY SINUS COLD POWDER [Suspect]
     Indication: NASOPHARYNGITIS
     Dosage: ORAL
     Route: 048
  5. WARFARIN SODIUM [Concomitant]
  6. DIGOXIN [Concomitant]
  7. GEMFIBROZIL [Concomitant]

REACTIONS (3)
  - CEREBRAL HAEMORRHAGE [None]
  - CEREBROVASCULAR ACCIDENT [None]
  - CONVULSION [None]
